FAERS Safety Report 23651267 (Version 3)
Quarter: 2025Q2

REPORT INFORMATION
  Report Type: Spontaneous
  Country: CA (occurrence: CA)
  Receive Date: 20240320
  Receipt Date: 20250626
  Transmission Date: 20250716
  Serious: Yes (Death, Life-Threatening, Hospitalization, Disabling, Congenital Anomaly, Other)
  Sender: Haleon PLC
  Company Number: CA-002147023-NVSC2024CA054144

PATIENT
  Age: 43 Year
  Sex: Female
  Weight: 68 kg

DRUGS (358)
  1. DICLOFENAC DIETHYLAMINE [Suspect]
     Active Substance: DICLOFENAC DIETHYLAMINE
     Indication: Product used for unknown indication
  2. DICLOFENAC DIETHYLAMINE [Suspect]
     Active Substance: DICLOFENAC DIETHYLAMINE
  3. PSEUDOEPHEDRINE [Suspect]
     Active Substance: PSEUDOEPHEDRINE
     Indication: Product used for unknown indication
  4. SULFAMETHOXAZOLE [Suspect]
     Active Substance: SULFAMETHOXAZOLE
     Indication: Product used for unknown indication
  5. SULFAMETHOXAZOLE [Suspect]
     Active Substance: SULFAMETHOXAZOLE
  6. OXYCODONE TEREPHTHALATE [Suspect]
     Active Substance: OXYCODONE TEREPHTHALATE
     Indication: Product used for unknown indication
  7. OXYCODONE TEREPHTHALATE [Suspect]
     Active Substance: OXYCODONE TEREPHTHALATE
  8. TRAMADOL HYDROCHLORIDE [Suspect]
     Active Substance: TRAMADOL HYDROCHLORIDE
     Indication: Product used for unknown indication
  9. TRAMADOL HYDROCHLORIDE [Suspect]
     Active Substance: TRAMADOL HYDROCHLORIDE
  10. TRAMADOL HYDROCHLORIDE [Suspect]
     Active Substance: TRAMADOL HYDROCHLORIDE
  11. TRAMADOL HYDROCHLORIDE [Suspect]
     Active Substance: TRAMADOL HYDROCHLORIDE
  12. PANTOPRAZOLE SODIUM ANHYDROUS [Concomitant]
     Active Substance: PANTOPRAZOLE SODIUM ANHYDROUS
     Indication: Product used for unknown indication
  13. PANTOPRAZOLE SODIUM ANHYDROUS [Concomitant]
     Active Substance: PANTOPRAZOLE SODIUM ANHYDROUS
  14. CLIOQUINOL\FLUMETHASONE [Suspect]
     Active Substance: CLIOQUINOL\FLUMETHASONE
     Indication: Rheumatoid arthritis
  15. CLIOQUINOL\FLUMETHASONE [Suspect]
     Active Substance: CLIOQUINOL\FLUMETHASONE
  16. DICLOFENAC POTASSIUM [Suspect]
     Active Substance: DICLOFENAC POTASSIUM
     Indication: Product used for unknown indication
  17. DICLOFENAC POTASSIUM [Suspect]
     Active Substance: DICLOFENAC POTASSIUM
  18. RISEDRONATE SODIUM [Concomitant]
     Active Substance: RISEDRONATE SODIUM
     Indication: Product used for unknown indication
  19. RISEDRONATE SODIUM [Concomitant]
     Active Substance: RISEDRONATE SODIUM
  20. CELECOXIB [Suspect]
     Active Substance: CELECOXIB
     Indication: Rheumatoid arthritis
     Dosage: 2 DOSAGE FORM, QD (1 EVERY 1 DAYS), TABLET, ORAL USE
  21. CELECOXIB [Suspect]
     Active Substance: CELECOXIB
     Dosage: UNK, QD, TABLET, ORAL USE
  22. CELECOXIB [Suspect]
     Active Substance: CELECOXIB
  23. CELECOXIB [Suspect]
     Active Substance: CELECOXIB
     Dosage: UNK, QD, TABLET, ORAL USE
  24. CELECOXIB [Suspect]
     Active Substance: CELECOXIB
     Dosage: UNK, TABLET
  25. CELECOXIB [Suspect]
     Active Substance: CELECOXIB
  26. ERGOCALCIFEROL [Concomitant]
     Active Substance: ERGOCALCIFEROL
     Indication: Product used for unknown indication
  27. ERGOCALCIFEROL [Concomitant]
     Active Substance: ERGOCALCIFEROL
  28. INFLIXIMAB [Suspect]
     Active Substance: INFLIXIMAB
     Indication: Rheumatoid arthritis
  29. INFLIXIMAB [Suspect]
     Active Substance: INFLIXIMAB
     Indication: Product used for unknown indication
  30. INFLIXIMAB [Suspect]
     Active Substance: INFLIXIMAB
  31. FOSAMAX [Suspect]
     Active Substance: ALENDRONATE SODIUM
     Indication: Rheumatoid arthritis
     Route: 050
  32. FOSAMAX [Suspect]
     Active Substance: ALENDRONATE SODIUM
  33. CORTISONE (HYDROCORTISONE) [Suspect]
     Active Substance: HYDROCORTISONE
     Indication: Rheumatoid arthritis
  34. MYCOPHENOLATE MOFETIL [Suspect]
     Active Substance: MYCOPHENOLATE MOFETIL
     Indication: Product used for unknown indication
  35. MYCOPHENOLATE MOFETIL [Suspect]
     Active Substance: MYCOPHENOLATE MOFETIL
  36. ENBREL [Suspect]
     Active Substance: ETANERCEPT
     Indication: Rheumatoid arthritis
  37. ENBREL [Suspect]
     Active Substance: ETANERCEPT
     Indication: Product used for unknown indication
     Dosage: 50 MG, WE, ROA: SUBCUTANEOUS
  38. ENBREL [Suspect]
     Active Substance: ETANERCEPT
     Dosage: 50 MG, WE, SUBCUTANEOUS
  39. DICLOFENAC SODIUM [Suspect]
     Active Substance: DICLOFENAC SODIUM
     Indication: Product used for unknown indication
  40. DICLOFENAC SODIUM [Suspect]
     Active Substance: DICLOFENAC SODIUM
  41. DICLOFENAC SODIUM [Suspect]
     Active Substance: DICLOFENAC SODIUM
  42. DICLOFENAC SODIUM [Suspect]
     Active Substance: DICLOFENAC SODIUM
  43. CALCIUM LACTATE [Suspect]
     Active Substance: CALCIUM LACTATE
     Indication: Product used for unknown indication
  44. CALCIUM LACTATE [Suspect]
     Active Substance: CALCIUM LACTATE
  45. LYRICA [Suspect]
     Active Substance: PREGABALIN
     Indication: Product used for unknown indication
  46. LYRICA [Suspect]
     Active Substance: PREGABALIN
  47. RITUXIMAB [Suspect]
     Active Substance: RITUXIMAB
     Indication: Rheumatoid arthritis
  48. RITUXIMAB [Suspect]
     Active Substance: RITUXIMAB
  49. RITUXIMAB [Suspect]
     Active Substance: RITUXIMAB
  50. RITUXIMAB [Suspect]
     Active Substance: RITUXIMAB
  51. RITUXIMAB [Suspect]
     Active Substance: RITUXIMAB
  52. RITUXIMAB [Suspect]
     Active Substance: RITUXIMAB
  53. ELBASVIR [Concomitant]
     Active Substance: ELBASVIR
     Indication: Product used for unknown indication
  54. ELBASVIR [Concomitant]
     Active Substance: ELBASVIR
  55. METHOTREXATE SODIUM [Suspect]
     Active Substance: METHOTREXATE SODIUM
     Indication: Rheumatoid arthritis
  56. METHOTREXATE SODIUM [Suspect]
     Active Substance: METHOTREXATE SODIUM
     Dosage: 2 MG, QD, CONCENTRATE FOR SOLUTION FOR INFUSION, ORAL
  57. ISOPROPYL ALCOHOL [Suspect]
     Active Substance: ISOPROPYL ALCOHOL
     Indication: Product used for unknown indication
  58. ISOPROPYL ALCOHOL [Suspect]
     Active Substance: ISOPROPYL ALCOHOL
  59. ADALIMUMAB [Suspect]
     Active Substance: ADALIMUMAB
     Indication: Rheumatoid arthritis
  60. ADALIMUMAB [Suspect]
     Active Substance: ADALIMUMAB
     Indication: Product used for unknown indication
  61. ADALIMUMAB [Suspect]
     Active Substance: ADALIMUMAB
  62. ADALIMUMAB [Suspect]
     Active Substance: ADALIMUMAB
  63. ADALIMUMAB [Suspect]
     Active Substance: ADALIMUMAB
  64. ADALIMUMAB [Suspect]
     Active Substance: ADALIMUMAB
  65. ADALIMUMAB [Suspect]
     Active Substance: ADALIMUMAB
  66. COSENTYX [Suspect]
     Active Substance: SECUKINUMAB
     Indication: Psoriatic arthropathy
  67. COSENTYX [Suspect]
     Active Substance: SECUKINUMAB
  68. SULFASALAZINE [Concomitant]
     Active Substance: SULFASALAZINE
     Indication: Product used for unknown indication
  69. SULFASALAZINE [Concomitant]
     Active Substance: SULFASALAZINE
  70. FLUMETHASONE PIVALATE [Suspect]
     Active Substance: FLUMETHASONE PIVALATE
     Indication: Rheumatoid arthritis
  71. FLUMETHASONE PIVALATE [Suspect]
     Active Substance: FLUMETHASONE PIVALATE
  72. LORAZEPAM [Concomitant]
     Active Substance: LORAZEPAM
     Indication: Product used for unknown indication
  73. LORAZEPAM [Concomitant]
     Active Substance: LORAZEPAM
  74. CAFFEINE [Concomitant]
     Active Substance: CAFFEINE
     Indication: Product used for unknown indication
  75. CAFFEINE [Concomitant]
     Active Substance: CAFFEINE
  76. PANTOPRAZOLE SODIUM [Concomitant]
     Active Substance: PANTOPRAZOLE SODIUM
     Indication: Product used for unknown indication
  77. QUETIAPINE FUMARATE [Concomitant]
     Active Substance: QUETIAPINE FUMARATE
     Indication: Product used for unknown indication
  78. QUETIAPINE FUMARATE [Concomitant]
     Active Substance: QUETIAPINE FUMARATE
  79. STELARA [Suspect]
     Active Substance: USTEKINUMAB
     Indication: Rheumatoid arthritis
  80. STELARA [Suspect]
     Active Substance: USTEKINUMAB
  81. STELARA [Suspect]
     Active Substance: USTEKINUMAB
  82. STELARA [Suspect]
     Active Substance: USTEKINUMAB
  83. STELARA [Suspect]
     Active Substance: USTEKINUMAB
  84. STELARA [Suspect]
     Active Substance: USTEKINUMAB
  85. OXYCODONE [Suspect]
     Active Substance: OXYCODONE
     Indication: Product used for unknown indication
  86. OXYCODONE [Suspect]
     Active Substance: OXYCODONE
  87. HYDROXYCHLOROQUINE SULFATE [Suspect]
     Active Substance: HYDROXYCHLOROQUINE SULFATE
     Indication: Rheumatoid arthritis
     Dosage: 400 MG, QD, TABLET, URETHRAL
  88. HYDROXYCHLOROQUINE SULFATE [Suspect]
     Active Substance: HYDROXYCHLOROQUINE SULFATE
     Indication: Product used for unknown indication
     Dosage: 400 MG, QD, TABLET, ORAL
  89. PHTHALYLSULFATHIAZOLE [Suspect]
     Active Substance: PHTHALYLSULFATHIAZOLE
     Indication: Rheumatoid arthritis
  90. PHTHALYLSULFATHIAZOLE [Suspect]
     Active Substance: PHTHALYLSULFATHIAZOLE
  91. PHTHALYLSULFATHIAZOLE [Suspect]
     Active Substance: PHTHALYLSULFATHIAZOLE
  92. PHTHALYLSULFATHIAZOLE [Suspect]
     Active Substance: PHTHALYLSULFATHIAZOLE
  93. PHTHALYLSULFATHIAZOLE [Suspect]
     Active Substance: PHTHALYLSULFATHIAZOLE
     Dosage: 400 MG, QD (1 EVERY 1 DAYS)
  94. PHTHALYLSULFATHIAZOLE [Suspect]
     Active Substance: PHTHALYLSULFATHIAZOLE
     Dosage: 1000 MG, BID (2 EVERY 1 DAYS)
  95. CALCIUM CHLORIDE [Suspect]
     Active Substance: CALCIUM CHLORIDE
     Indication: Product used for unknown indication
  96. CALCIUM CHLORIDE [Suspect]
     Active Substance: CALCIUM CHLORIDE
  97. TOCILIZUMAB [Suspect]
     Active Substance: TOCILIZUMAB
     Indication: Product used for unknown indication
  98. TOCILIZUMAB [Suspect]
     Active Substance: TOCILIZUMAB
  99. TOCILIZUMAB [Suspect]
     Active Substance: TOCILIZUMAB
  100. TOCILIZUMAB [Suspect]
     Active Substance: TOCILIZUMAB
  101. ALENDRONIC ACID [Suspect]
     Active Substance: ALENDRONIC ACID
     Indication: Rheumatoid arthritis
  102. ALENDRONIC ACID [Suspect]
     Active Substance: ALENDRONIC ACID
     Indication: Product used for unknown indication
     Route: 048
  103. ALENDRONIC ACID [Suspect]
     Active Substance: ALENDRONIC ACID
  104. ALENDRONIC ACID [Suspect]
     Active Substance: ALENDRONIC ACID
  105. ALENDRONIC ACID [Suspect]
     Active Substance: ALENDRONIC ACID
  106. ALENDRONIC ACID [Suspect]
     Active Substance: ALENDRONIC ACID
  107. ALENDRONIC ACID [Suspect]
     Active Substance: ALENDRONIC ACID
  108. CERTOLIZUMAB PEGOL [Suspect]
     Active Substance: CERTOLIZUMAB PEGOL
     Indication: Product used for unknown indication
  109. CERTOLIZUMAB PEGOL [Suspect]
     Active Substance: CERTOLIZUMAB PEGOL
  110. CETIRIZINE HYDROCHLORIDE [Suspect]
     Active Substance: CETIRIZINE HYDROCHLORIDE
     Indication: Rheumatoid arthritis
  111. CETIRIZINE HYDROCHLORIDE [Suspect]
     Active Substance: CETIRIZINE HYDROCHLORIDE
  112. CETIRIZINE HYDROCHLORIDE [Suspect]
     Active Substance: CETIRIZINE HYDROCHLORIDE
  113. CETIRIZINE HYDROCHLORIDE [Suspect]
     Active Substance: CETIRIZINE HYDROCHLORIDE
  114. CETIRIZINE HYDROCHLORIDE [Suspect]
     Active Substance: CETIRIZINE HYDROCHLORIDE
  115. CETIRIZINE HYDROCHLORIDE [Suspect]
     Active Substance: CETIRIZINE HYDROCHLORIDE
  116. CETIRIZINE HYDROCHLORIDE [Suspect]
     Active Substance: CETIRIZINE HYDROCHLORIDE
  117. CETIRIZINE HYDROCHLORIDE [Suspect]
     Active Substance: CETIRIZINE HYDROCHLORIDE
  118. CETIRIZINE HYDROCHLORIDE [Suspect]
     Active Substance: CETIRIZINE HYDROCHLORIDE
  119. CETIRIZINE HYDROCHLORIDE [Suspect]
     Active Substance: CETIRIZINE HYDROCHLORIDE
  120. CETIRIZINE HYDROCHLORIDE [Suspect]
     Active Substance: CETIRIZINE HYDROCHLORIDE
  121. CETIRIZINE HYDROCHLORIDE [Suspect]
     Active Substance: CETIRIZINE HYDROCHLORIDE
  122. CORTISONE ACETATE [Suspect]
     Active Substance: CORTISONE ACETATE
     Indication: Rheumatoid arthritis
  123. CORTISONE ACETATE [Suspect]
     Active Substance: CORTISONE ACETATE
     Indication: Product used for unknown indication
  124. CORTISONE ACETATE [Suspect]
     Active Substance: CORTISONE ACETATE
  125. PSEUDOEPHEDRINE HYDROCHLORIDE [Suspect]
     Active Substance: PSEUDOEPHEDRINE HYDROCHLORIDE
     Indication: Rheumatoid arthritis
  126. PSEUDOEPHEDRINE HYDROCHLORIDE [Suspect]
     Active Substance: PSEUDOEPHEDRINE HYDROCHLORIDE
  127. PSEUDOEPHEDRINE HYDROCHLORIDE [Suspect]
     Active Substance: PSEUDOEPHEDRINE HYDROCHLORIDE
  128. PSEUDOEPHEDRINE HYDROCHLORIDE [Suspect]
     Active Substance: PSEUDOEPHEDRINE HYDROCHLORIDE
  129. CETIRIZINE HYDROCHLORIDE\PSEUDOEPHEDRINE HYDROCHLORIDE [Suspect]
     Active Substance: CETIRIZINE HYDROCHLORIDE\PSEUDOEPHEDRINE HYDROCHLORIDE
     Indication: Rheumatoid arthritis
     Dosage: 10 MG, DOSE FORM: PROLONGED-RELEASE TABLET
  130. CETIRIZINE HYDROCHLORIDE\PSEUDOEPHEDRINE HYDROCHLORIDE [Suspect]
     Active Substance: CETIRIZINE HYDROCHLORIDE\PSEUDOEPHEDRINE HYDROCHLORIDE
  131. CETIRIZINE HYDROCHLORIDE\PSEUDOEPHEDRINE HYDROCHLORIDE [Suspect]
     Active Substance: CETIRIZINE HYDROCHLORIDE\PSEUDOEPHEDRINE HYDROCHLORIDE
  132. CETIRIZINE HYDROCHLORIDE\PSEUDOEPHEDRINE HYDROCHLORIDE [Suspect]
     Active Substance: CETIRIZINE HYDROCHLORIDE\PSEUDOEPHEDRINE HYDROCHLORIDE
  133. CETIRIZINE HYDROCHLORIDE\PSEUDOEPHEDRINE HYDROCHLORIDE [Suspect]
     Active Substance: CETIRIZINE HYDROCHLORIDE\PSEUDOEPHEDRINE HYDROCHLORIDE
  134. TOFACITINIB CITRATE [Suspect]
     Active Substance: TOFACITINIB CITRATE
     Indication: Rheumatoid arthritis
     Dosage: 10 MG, QD (5 MG, BID)
  135. TOFACITINIB CITRATE [Suspect]
     Active Substance: TOFACITINIB CITRATE
     Indication: Psoriatic arthropathy
  136. TOFACITINIB CITRATE [Suspect]
     Active Substance: TOFACITINIB CITRATE
     Dosage: 5 MG, QD, TABLET
  137. TOFACITINIB CITRATE [Suspect]
     Active Substance: TOFACITINIB CITRATE
     Dosage: 5 MG, QD, TABLET
  138. TOFACITINIB CITRATE [Suspect]
     Active Substance: TOFACITINIB CITRATE
     Dosage: 5 MG, TABLET, ORAL USE
  139. TOFACITINIB CITRATE [Suspect]
     Active Substance: TOFACITINIB CITRATE
     Dosage: 5 MG, WE, TABLET ROA : ORAL
  140. TOFACITINIB CITRATE [Suspect]
     Active Substance: TOFACITINIB CITRATE
     Dosage: 10 MG, QD, TABLET
  141. TOFACITINIB CITRATE [Suspect]
     Active Substance: TOFACITINIB CITRATE
     Dosage: 5 MG BID, TABLET
  142. ERELZI [Suspect]
     Active Substance: ETANERCEPT-SZZS
     Indication: Rheumatoid arthritis
  143. ERELZI [Suspect]
     Active Substance: ETANERCEPT-SZZS
  144. ERELZI [Suspect]
     Active Substance: ETANERCEPT-SZZS
  145. ERELZI [Suspect]
     Active Substance: ETANERCEPT-SZZS
  146. ERELZI [Suspect]
     Active Substance: ETANERCEPT-SZZS
  147. ERELZI [Suspect]
     Active Substance: ETANERCEPT-SZZS
  148. ERELZI [Suspect]
     Active Substance: ETANERCEPT-SZZS
  149. APREMILAST [Suspect]
     Active Substance: APREMILAST
     Indication: Product used for unknown indication
  150. PANTOPRAZOLE SODIUM [Concomitant]
     Active Substance: PANTOPRAZOLE SODIUM
     Indication: Product used for unknown indication
  151. ARAVA [Suspect]
     Active Substance: LEFLUNOMIDE
     Indication: Rheumatoid arthritis
  152. ARAVA [Suspect]
     Active Substance: LEFLUNOMIDE
  153. ARAVA [Suspect]
     Active Substance: LEFLUNOMIDE
     Dosage: 20 MG, TABLET
  154. ARAVA [Suspect]
     Active Substance: LEFLUNOMIDE
  155. ARAVA [Suspect]
     Active Substance: LEFLUNOMIDE
  156. PIROXICAM [Concomitant]
     Active Substance: PIROXICAM
     Indication: Product used for unknown indication
  157. PIROXICAM [Concomitant]
     Active Substance: PIROXICAM
  158. FISH OIL [Concomitant]
     Active Substance: FISH OIL
     Indication: Product used for unknown indication
  159. FISH OIL [Concomitant]
     Active Substance: FISH OIL
  160. PREDNISOLONE [Concomitant]
     Active Substance: PREDNISOLONE
     Indication: Product used for unknown indication
  161. PREDNISOLONE [Concomitant]
     Active Substance: PREDNISOLONE
  162. ORENCIA [Suspect]
     Active Substance: ABATACEPT
     Indication: Rheumatoid arthritis
  163. ORENCIA [Suspect]
     Active Substance: ABATACEPT
  164. ORENCIA [Suspect]
     Active Substance: ABATACEPT
  165. ORENCIA [Suspect]
     Active Substance: ABATACEPT
  166. ORENCIA [Suspect]
     Active Substance: ABATACEPT
  167. ORENCIA [Suspect]
     Active Substance: ABATACEPT
  168. ORENCIA [Suspect]
     Active Substance: ABATACEPT
  169. ORENCIA [Suspect]
     Active Substance: ABATACEPT
  170. ORENCIA [Suspect]
     Active Substance: ABATACEPT
  171. MAGNESIUM [Concomitant]
     Active Substance: MAGNESIUM
     Indication: Product used for unknown indication
  172. MAGNESIUM [Concomitant]
     Active Substance: MAGNESIUM
  173. XELJANZ [Suspect]
     Active Substance: TOFACITINIB CITRATE
     Indication: Rheumatoid arthritis
  174. XELJANZ [Suspect]
     Active Substance: TOFACITINIB CITRATE
     Indication: Product used for unknown indication
     Dosage: 5 MG, QD, TABLET, ORAL USE
  175. XELJANZ [Suspect]
     Active Substance: TOFACITINIB CITRATE
     Dosage: 5 MG, WE, TABLET, ORAL USE
  176. XELJANZ [Suspect]
     Active Substance: TOFACITINIB CITRATE
  177. XELJANZ [Suspect]
     Active Substance: TOFACITINIB CITRATE
     Route: 050
  178. XELJANZ [Suspect]
     Active Substance: TOFACITINIB CITRATE
  179. XELJANZ [Suspect]
     Active Substance: TOFACITINIB CITRATE
     Dosage: 5 MG, QW, TABLET , ORAL
  180. XELJANZ [Suspect]
     Active Substance: TOFACITINIB CITRATE
     Dosage: 5 MG, BID, TABLET, ORAL USE
  181. XELJANZ [Suspect]
     Active Substance: TOFACITINIB CITRATE
  182. XELJANZ [Suspect]
     Active Substance: TOFACITINIB CITRATE
  183. RAMIPRIL [Concomitant]
     Active Substance: RAMIPRIL
     Indication: Product used for unknown indication
  184. RAMIPRIL [Concomitant]
     Active Substance: RAMIPRIL
  185. HYDROCORTISONE [Suspect]
     Active Substance: HYDROCORTISONE
     Indication: Product used for unknown indication
  186. HYDROCORTISONE [Suspect]
     Active Substance: HYDROCORTISONE
  187. HYDROCORTISONE [Suspect]
     Active Substance: HYDROCORTISONE
  188. HYDROCORTISONE [Suspect]
     Active Substance: HYDROCORTISONE
  189. CALCIUM CARBONATE [Suspect]
     Active Substance: CALCIUM CARBONATE
     Indication: Product used for unknown indication
  190. CALCIUM CARBONATE [Suspect]
     Active Substance: CALCIUM CARBONATE
  191. CALCIUM CARBONATE [Suspect]
     Active Substance: CALCIUM CARBONATE
  192. CALCIUM CARBONATE [Suspect]
     Active Substance: CALCIUM CARBONATE
  193. METHOTREXATE [Suspect]
     Active Substance: METHOTREXATE
     Indication: Rheumatoid arthritis
     Dosage: 20 MG, QD
     Route: 048
  194. METHOTREXATE [Suspect]
     Active Substance: METHOTREXATE
     Dosage: 25 MG, QD
  195. METHOTREXATE [Suspect]
     Active Substance: METHOTREXATE
     Dosage: 15 MG, QD
     Route: 048
  196. METHOTREXATE [Suspect]
     Active Substance: METHOTREXATE
     Dosage: 2 MG, QD (1 MG, BID)
     Route: 048
  197. METHOTREXATE [Suspect]
     Active Substance: METHOTREXATE
     Dosage: 20 MG, QD
  198. METHOTREXATE [Suspect]
     Active Substance: METHOTREXATE
     Dosage: 20 MG, QD
     Route: 050
  199. METHOTREXATE [Suspect]
     Active Substance: METHOTREXATE
     Dosage: 2 MG, QD (1 MG, BID)
     Route: 048
  200. METHOTREXATE [Suspect]
     Active Substance: METHOTREXATE
     Dosage: 20 MG, WE
     Route: 048
  201. METHOTREXATE [Suspect]
     Active Substance: METHOTREXATE
     Dosage: 25 MG, QD
     Route: 058
  202. METHOTREXATE [Suspect]
     Active Substance: METHOTREXATE
     Dosage: 2 G QD
  203. METHOTREXATE [Suspect]
     Active Substance: METHOTREXATE
     Route: 050
  204. METHOTREXATE [Suspect]
     Active Substance: METHOTREXATE
  205. METHOTREXATE [Suspect]
     Active Substance: METHOTREXATE
     Dosage: 25 MG, QD
     Route: 050
  206. METHOTREXATE [Suspect]
     Active Substance: METHOTREXATE
     Route: 050
  207. METHOTREXATE [Suspect]
     Active Substance: METHOTREXATE
     Route: 050
  208. METHOTREXATE [Suspect]
     Active Substance: METHOTREXATE
  209. METHOTREXATE [Suspect]
     Active Substance: METHOTREXATE
     Route: 050
  210. METHOTREXATE [Suspect]
     Active Substance: METHOTREXATE
  211. METHOTREXATE [Suspect]
     Active Substance: METHOTREXATE
     Route: 050
  212. METHOTREXATE [Suspect]
     Active Substance: METHOTREXATE
     Route: 050
  213. METHOTREXATE [Suspect]
     Active Substance: METHOTREXATE
     Route: 050
  214. METHOTREXATE [Suspect]
     Active Substance: METHOTREXATE
     Route: 050
  215. METHOTREXATE [Suspect]
     Active Substance: METHOTREXATE
     Dosage: 20 MG, QD
     Route: 050
  216. METHOTREXATE [Suspect]
     Active Substance: METHOTREXATE
     Dosage: 20 MG, QD
     Route: 050
  217. LEVOTHYROXINE SODIUM [Concomitant]
     Active Substance: LEVOTHYROXINE SODIUM
     Indication: Product used for unknown indication
  218. LEVOTHYROXINE SODIUM [Concomitant]
     Active Substance: LEVOTHYROXINE SODIUM
  219. HUMIRA [Suspect]
     Active Substance: ADALIMUMAB
     Indication: Rheumatoid arthritis
     Route: 058
  220. HUMIRA [Suspect]
     Active Substance: ADALIMUMAB
     Indication: Psoriatic arthropathy
  221. NAPROXEN SODIUM [Suspect]
     Active Substance: NAPROXEN SODIUM
     Indication: Product used for unknown indication
  222. NAPROXEN SODIUM [Suspect]
     Active Substance: NAPROXEN SODIUM
     Indication: Rheumatoid arthritis
  223. NAPROXEN SODIUM [Suspect]
     Active Substance: NAPROXEN SODIUM
  224. GLUCOSAMINE [Concomitant]
     Active Substance: GLUCOSAMINE
     Indication: Product used for unknown indication
  225. GLUCOSAMINE [Concomitant]
     Active Substance: GLUCOSAMINE
  226. PREDNISONE [Suspect]
     Active Substance: PREDNISONE
     Indication: Rheumatoid arthritis
  227. PREDNISONE [Suspect]
     Active Substance: PREDNISONE
  228. PREGABALIN [Suspect]
     Active Substance: PREGABALIN
     Indication: Product used for unknown indication
  229. PREDNISONE [Suspect]
     Active Substance: PREDNISONE
     Indication: Rheumatoid arthritis
  230. PREDNISONE [Suspect]
     Active Substance: PREDNISONE
  231. PREDNISONE [Suspect]
     Active Substance: PREDNISONE
  232. PREDNISONE [Suspect]
     Active Substance: PREDNISONE
  233. PREDNISONE [Suspect]
     Active Substance: PREDNISONE
  234. PREDNISONE [Suspect]
     Active Substance: PREDNISONE
  235. HYDROXYCHLOROQUINE [Suspect]
     Active Substance: HYDROXYCHLOROQUINE
     Indication: Rheumatoid arthritis
     Dosage: 40 MG, QD
  236. HYDROXYCHLOROQUINE [Suspect]
     Active Substance: HYDROXYCHLOROQUINE
     Dosage: 400 MG, QD
  237. HYDROXYCHLOROQUINE [Suspect]
     Active Substance: HYDROXYCHLOROQUINE
     Dosage: 400 MG, QD
     Route: 048
  238. HYDROXYCHLOROQUINE [Suspect]
     Active Substance: HYDROXYCHLOROQUINE
     Dosage: 400 MG, QD
     Route: 048
  239. HYDROXYCHLOROQUINE [Suspect]
     Active Substance: HYDROXYCHLOROQUINE
     Dosage: 420 MG, QD
  240. HYDROXYCHLOROQUINE [Suspect]
     Active Substance: HYDROXYCHLOROQUINE
     Dosage: 400 MG, QD
     Route: 050
  241. PREDNISONE [Suspect]
     Active Substance: PREDNISONE
     Indication: Rheumatoid arthritis
     Route: 048
  242. PREDNISONE [Suspect]
     Active Substance: PREDNISONE
     Indication: Condition aggravated
  243. PREDNISONE [Suspect]
     Active Substance: PREDNISONE
     Indication: Psoriatic arthropathy
  244. PREDNISONE [Suspect]
     Active Substance: PREDNISONE
  245. PREDNISONE [Suspect]
     Active Substance: PREDNISONE
  246. PREDNISONE [Suspect]
     Active Substance: PREDNISONE
     Route: 050
  247. PREDNISONE [Suspect]
     Active Substance: PREDNISONE
  248. CALCIUM GLUBIONATE [Concomitant]
     Active Substance: CALCIUM GLUBIONATE
     Indication: Product used for unknown indication
  249. CALCIUM GLUBIONATE [Concomitant]
     Active Substance: CALCIUM GLUBIONATE
  250. LISINOPRIL [Concomitant]
     Active Substance: LISINOPRIL
     Indication: Product used for unknown indication
  251. LISINOPRIL [Concomitant]
     Active Substance: LISINOPRIL
  252. ACETAMINOPHEN [Suspect]
     Active Substance: ACETAMINOPHEN
     Indication: Product used for unknown indication
  253. ACETAMINOPHEN [Suspect]
     Active Substance: ACETAMINOPHEN
  254. CELEBREX [Suspect]
     Active Substance: CELECOXIB
     Indication: Rheumatoid arthritis
     Route: 048
  255. CELEBREX [Suspect]
     Active Substance: CELECOXIB
  256. CELEBREX [Suspect]
     Active Substance: CELECOXIB
  257. CYANOCOBALAMIN [Concomitant]
     Active Substance: CYANOCOBALAMIN
     Indication: Product used for unknown indication
  258. CYANOCOBALAMIN [Concomitant]
     Active Substance: CYANOCOBALAMIN
  259. DESOXIMETASONE [Suspect]
     Active Substance: DESOXIMETASONE
     Indication: Rheumatoid arthritis
     Route: 050
  260. DESOXIMETASONE [Suspect]
     Active Substance: DESOXIMETASONE
     Indication: Product used for unknown indication
     Route: 048
  261. DESOXIMETASONE [Suspect]
     Active Substance: DESOXIMETASONE
  262. DESOXIMETASONE [Suspect]
     Active Substance: DESOXIMETASONE
  263. DESOXIMETASONE [Suspect]
     Active Substance: DESOXIMETASONE
  264. DESOXIMETASONE [Suspect]
     Active Substance: DESOXIMETASONE
     Dosage: 20 MG, WE
     Route: 048
  265. DESOXIMETASONE [Suspect]
     Active Substance: DESOXIMETASONE
     Route: 050
  266. DESOXIMETASONE [Suspect]
     Active Substance: DESOXIMETASONE
     Route: 058
  267. DESOXIMETASONE [Suspect]
     Active Substance: DESOXIMETASONE
  268. DESOXIMETASONE [Suspect]
     Active Substance: DESOXIMETASONE
     Dosage: 25 MG (1 EVERY 1 WEEKS)
     Route: 048
  269. LEFLUNOMIDE [Suspect]
     Active Substance: LEFLUNOMIDE
     Indication: Rheumatoid arthritis
     Route: 050
  270. LEFLUNOMIDE [Suspect]
     Active Substance: LEFLUNOMIDE
     Route: 048
  271. LEFLUNOMIDE [Suspect]
     Active Substance: LEFLUNOMIDE
     Dosage: 20 MG, QD
  272. IBUPROFEN [Concomitant]
     Active Substance: IBUPROFEN
     Indication: Product used for unknown indication
  273. IBUPROFEN [Concomitant]
     Active Substance: IBUPROFEN
  274. NAPROXEN [Suspect]
     Active Substance: NAPROXEN
     Indication: Rheumatoid arthritis
     Dosage: 1000 MG, QD (500 MG, BID)
  275. FOLIC ACID [Suspect]
     Active Substance: FOLIC ACID
     Indication: Rheumatoid arthritis
  276. FOLIC ACID [Suspect]
     Active Substance: FOLIC ACID
     Route: 048
  277. FOLIC ACID [Suspect]
     Active Substance: FOLIC ACID
     Route: 050
  278. FOLIC ACID [Suspect]
     Active Substance: FOLIC ACID
  279. FOLIC ACID [Suspect]
     Active Substance: FOLIC ACID
     Route: 058
  280. FOLIC ACID [Suspect]
     Active Substance: FOLIC ACID
     Route: 050
  281. FOLIC ACID [Suspect]
     Active Substance: FOLIC ACID
  282. FOLIC ACID [Suspect]
     Active Substance: FOLIC ACID
  283. FOLIC ACID [Suspect]
     Active Substance: FOLIC ACID
     Route: 050
  284. CIMZIA [Suspect]
     Active Substance: CERTOLIZUMAB PEGOL
     Indication: Rheumatoid arthritis
     Route: 050
  285. CIMZIA [Suspect]
     Active Substance: CERTOLIZUMAB PEGOL
     Indication: Product used for unknown indication
     Route: 058
  286. CIMZIA [Suspect]
     Active Substance: CERTOLIZUMAB PEGOL
     Indication: Psoriasis
     Route: 050
  287. CIMZIA [Suspect]
     Active Substance: CERTOLIZUMAB PEGOL
     Route: 048
  288. CIMZIA [Suspect]
     Active Substance: CERTOLIZUMAB PEGOL
     Route: 058
  289. CIMZIA [Suspect]
     Active Substance: CERTOLIZUMAB PEGOL
     Route: 050
  290. SULFASALAZINE [Suspect]
     Active Substance: SULFASALAZINE
     Indication: Rheumatoid arthritis
     Dosage: 1000 MG, QD (500 MG, BID)
  291. SULFASALAZINE [Suspect]
     Active Substance: SULFASALAZINE
     Indication: Product used for unknown indication
     Route: 048
  292. SULFASALAZINE [Suspect]
     Active Substance: SULFASALAZINE
     Dosage: 1 G, QD
  293. SULFASALAZINE [Suspect]
     Active Substance: SULFASALAZINE
     Dosage: 1 G
     Route: 048
  294. SULFASALAZINE [Suspect]
     Active Substance: SULFASALAZINE
     Dosage: 2 G, QD (1 G, BID)
  295. SULFASALAZINE [Suspect]
     Active Substance: SULFASALAZINE
     Route: 050
  296. SULFASALAZINE [Suspect]
     Active Substance: SULFASALAZINE
     Dosage: 2 G, (2 EVERY 1 DAYS)
  297. SULFASALAZINE [Suspect]
     Active Substance: SULFASALAZINE
     Dosage: 2G (2 EVERY 1 DAYS)
  298. SULFASALAZINE [Suspect]
     Active Substance: SULFASALAZINE
     Dosage: 1000 MG, BID (2 EVERY 1 DAYS)
  299. SULFASALAZINE [Suspect]
     Active Substance: SULFASALAZINE
     Dosage: 2 G Q12H
  300. SULFASALAZINE [Suspect]
     Active Substance: SULFASALAZINE
     Dosage: 1 G Q12H
  301. SULFASALAZINE [Suspect]
     Active Substance: SULFASALAZINE
     Dosage: 1000 MG (1 EVERY 1 DAYS)
     Route: 050
  302. SULFASALAZINE [Suspect]
     Active Substance: SULFASALAZINE
     Dosage: 1000 MG, BID (2 EVERY 1 DAYS)
     Route: 050
  303. ATIVAN [Concomitant]
     Active Substance: LORAZEPAM
     Indication: Anxiety
  304. REMICADE [Suspect]
     Active Substance: INFLIXIMAB
     Indication: Rheumatoid arthritis
     Route: 050
  305. REMICADE [Suspect]
     Active Substance: INFLIXIMAB
     Route: 042
  306. MELOXICAM [Concomitant]
     Active Substance: MELOXICAM
     Indication: Product used for unknown indication
  307. MELOXICAM [Concomitant]
     Active Substance: MELOXICAM
  308. LANSOPRAZOLE [Concomitant]
     Active Substance: LANSOPRAZOLE
     Indication: Product used for unknown indication
  309. LANSOPRAZOLE [Concomitant]
     Active Substance: LANSOPRAZOLE
  310. LANSOPRAZOLE [Concomitant]
     Active Substance: LANSOPRAZOLE
  311. CHOLECALCIFEROL [Concomitant]
     Active Substance: CHOLECALCIFEROL
     Indication: Product used for unknown indication
  312. CHOLECALCIFEROL [Concomitant]
     Active Substance: CHOLECALCIFEROL
  313. SIMPONI [Suspect]
     Active Substance: GOLIMUMAB
     Indication: Rheumatoid arthritis
     Dosage: 50 MG, DOSE FORM: SOLUTION
     Route: 050
  314. SIMPONI [Suspect]
     Active Substance: GOLIMUMAB
     Route: 050
  315. SIMPONI [Suspect]
     Active Substance: GOLIMUMAB
  316. SIMPONI [Suspect]
     Active Substance: GOLIMUMAB
     Route: 050
  317. SIMPONI [Suspect]
     Active Substance: GOLIMUMAB
     Route: 050
  318. CALCIUM GLUCONATE [Suspect]
     Active Substance: CALCIUM GLUCONATE
     Indication: Product used for unknown indication
  319. CALCIUM GLUCONATE [Suspect]
     Active Substance: CALCIUM GLUCONATE
  320. OTEZLA [Suspect]
     Active Substance: APREMILAST
     Indication: Rheumatoid arthritis
     Dosage: 3 MG (2 EVERY 1 DAYS)
     Route: 050
  321. OTEZLA [Suspect]
     Active Substance: APREMILAST
     Route: 048
  322. ACTEMRA [Suspect]
     Active Substance: TOCILIZUMAB
     Indication: Rheumatoid arthritis
  323. ACTEMRA [Suspect]
     Active Substance: TOCILIZUMAB
     Indication: Product used for unknown indication
  324. ACTEMRA [Suspect]
     Active Substance: TOCILIZUMAB
  325. ACTEMRA [Suspect]
     Active Substance: TOCILIZUMAB
  326. ACTEMRA [Suspect]
     Active Substance: TOCILIZUMAB
  327. ACTEMRA [Suspect]
     Active Substance: TOCILIZUMAB
  328. ACTEMRA [Suspect]
     Active Substance: TOCILIZUMAB
  329. ACTEMRA [Suspect]
     Active Substance: TOCILIZUMAB
  330. ACTEMRA [Suspect]
     Active Substance: TOCILIZUMAB
  331. ACTEMRA [Suspect]
     Active Substance: TOCILIZUMAB
  332. ACTEMRA [Suspect]
     Active Substance: TOCILIZUMAB
  333. ACTEMRA [Suspect]
     Active Substance: TOCILIZUMAB
  334. ACTEMRA [Suspect]
     Active Substance: TOCILIZUMAB
  335. ACTEMRA [Suspect]
     Active Substance: TOCILIZUMAB
  336. ACTEMRA [Suspect]
     Active Substance: TOCILIZUMAB
  337. ACTEMRA [Suspect]
     Active Substance: TOCILIZUMAB
  338. GOLIMUMAB [Suspect]
     Active Substance: GOLIMUMAB
     Indication: Product used for unknown indication
  339. GOLIMUMAB [Suspect]
     Active Substance: GOLIMUMAB
  340. DOXYCYCLINE [Suspect]
     Active Substance: DOXYCYCLINE
     Indication: Product used for unknown indication
  341. VITAMIN D3 [Concomitant]
     Active Substance: CHOLECALCIFEROL
     Indication: Product used for unknown indication
  342. VITAMIN D3 [Concomitant]
     Active Substance: CHOLECALCIFEROL
  343. ASCORBIC ACID [Suspect]
     Active Substance: ASCORBIC ACID
     Indication: Product used for unknown indication
  344. ASCORBIC ACID [Suspect]
     Active Substance: ASCORBIC ACID
  345. QUETIAPINE [Concomitant]
     Active Substance: QUETIAPINE
     Indication: Product used for unknown indication
  346. QUETIAPINE [Concomitant]
     Active Substance: QUETIAPINE
  347. QUETIAPINE FUMARATE [Concomitant]
     Active Substance: QUETIAPINE FUMARATE
     Indication: Product used for unknown indication
  348. QUETIAPINE FUMARATE [Concomitant]
     Active Substance: QUETIAPINE FUMARATE
  349. ALENDRONATE SODIUM [Suspect]
     Active Substance: ALENDRONATE SODIUM
     Indication: Rheumatoid arthritis
     Route: 048
  350. Calcium, Colecalciferol, Magnesium, Phytomenadione, Zinc [Concomitant]
     Indication: Product used for unknown indication
  351. CHLORAPREP [Suspect]
     Active Substance: CHLORHEXIDINE GLUCONATE\ISOPROPYL ALCOHOL
     Indication: Product used for unknown indication
  352. CHLORAPREP [Suspect]
     Active Substance: CHLORHEXIDINE GLUCONATE\ISOPROPYL ALCOHOL
  353. NEOMYCIN [Suspect]
     Active Substance: NEOMYCIN
     Indication: Product used for unknown indication
  354. NEOMYCIN [Suspect]
     Active Substance: NEOMYCIN
  355. CETIRIZINE HYDROCHLORIDE\PSEUDOEPHEDRINE HYDROCHLORIDE [Suspect]
     Active Substance: CETIRIZINE HYDROCHLORIDE\PSEUDOEPHEDRINE HYDROCHLORIDE
     Indication: Rheumatoid arthritis
     Route: 048
  356. CETIRIZINE HYDROCHLORIDE\PSEUDOEPHEDRINE HYDROCHLORIDE [Suspect]
     Active Substance: CETIRIZINE HYDROCHLORIDE\PSEUDOEPHEDRINE HYDROCHLORIDE
     Route: 048
  357. KEVZARA [Suspect]
     Active Substance: SARILUMAB
     Indication: Rheumatoid arthritis
  358. KEVZARA [Suspect]
     Active Substance: SARILUMAB

REACTIONS (70)
  - Liver injury [Not Recovered/Not Resolved]
  - Sleep disorder [Not Recovered/Not Resolved]
  - Gait inability [Not Recovered/Not Resolved]
  - Injury [Not Recovered/Not Resolved]
  - Peripheral swelling [Fatal]
  - Hypertension [Not Recovered/Not Resolved]
  - Leukopenia [Not Recovered/Not Resolved]
  - Therapeutic product effect decreased [Not Recovered/Not Resolved]
  - Hypertransaminasaemia [Not Recovered/Not Resolved]
  - Sciatica [Not Recovered/Not Resolved]
  - Drug hypersensitivity [Not Recovered/Not Resolved]
  - Pain [Fatal]
  - Lower respiratory tract infection [Not Recovered/Not Resolved]
  - Pruritus [Not Recovered/Not Resolved]
  - Joint swelling [Not Recovered/Not Resolved]
  - Prescribed overdose [Not Recovered/Not Resolved]
  - Liver disorder [Not Recovered/Not Resolved]
  - Pericarditis [Not Recovered/Not Resolved]
  - Therapeutic response decreased [Not Recovered/Not Resolved]
  - Pemphigus [Not Recovered/Not Resolved]
  - Drug ineffective [Not Recovered/Not Resolved]
  - Maternal exposure during pregnancy [Fatal]
  - Nausea [Not Recovered/Not Resolved]
  - Infusion related reaction [Fatal]
  - Off label use [Not Recovered/Not Resolved]
  - Sinusitis [Not Recovered/Not Resolved]
  - Mobility decreased [Not Recovered/Not Resolved]
  - Lupus vulgaris [Not Recovered/Not Resolved]
  - Rheumatoid factor positive [Fatal]
  - Swelling [Not Recovered/Not Resolved]
  - Synovitis [Not Recovered/Not Resolved]
  - Rheumatic fever [Fatal]
  - Hypersensitivity [Fatal]
  - Therapy non-responder [Not Recovered/Not Resolved]
  - Treatment failure [Not Recovered/Not Resolved]
  - Irritable bowel syndrome [Not Recovered/Not Resolved]
  - Oedema [Fatal]
  - Product use in unapproved indication [Not Recovered/Not Resolved]
  - Musculoskeletal stiffness [Not Recovered/Not Resolved]
  - Hypoaesthesia [Not Recovered/Not Resolved]
  - Rash [Fatal]
  - Muscle injury [Not Recovered/Not Resolved]
  - Nasopharyngitis [Not Recovered/Not Resolved]
  - Type 2 diabetes mellitus [Fatal]
  - Swollen joint count increased [Not Recovered/Not Resolved]
  - Psoriatic arthropathy [Not Recovered/Not Resolved]
  - Product use issue [Not Recovered/Not Resolved]
  - Malaise [Not Recovered/Not Resolved]
  - Decreased appetite [Not Recovered/Not Resolved]
  - Ulcer haemorrhage [Not Recovered/Not Resolved]
  - Abdominal discomfort [Fatal]
  - Anxiety [Fatal]
  - Autoimmune disorder [Fatal]
  - Blister [Fatal]
  - C-reactive protein [Fatal]
  - Fatigue [Fatal]
  - Pregnancy [Fatal]
  - Abdominal pain upper [Fatal]
  - Alopecia [Fatal]
  - Arthralgia [Fatal]
  - Asthma [Fatal]
  - Blood cholesterol increased [Fatal]
  - Deep vein thrombosis postoperative [Fatal]
  - Live birth [Fatal]
  - Asthenia [Fatal]
  - Chest pain [Fatal]
  - Lower limb fracture [Fatal]
  - Osteoarthritis [Fatal]
  - C-reactive protein abnormal [Fatal]
  - Anti-cyclic citrullinated peptide antibody positive [Fatal]
